FAERS Safety Report 7356983-3 (Version None)
Quarter: 2011Q1

REPORT INFORMATION
  Report Type: 
  Country: None (occurrence: None)
  Receive Date: 20110317
  Receipt Date: 20110308
  Transmission Date: 20110831
  Serious: No
  Sender: FDA-Public Use
  Company Number: US-BIOGENIDEC-2011BI008965

PATIENT
  Age: 52 Year
  Sex: Female

DRUGS (1)
  1. AVONEX [Suspect]
     Indication: MULTIPLE SCLEROSIS
     Route: 030
     Dates: start: 20000612

REACTIONS (6)
  - GAIT DISTURBANCE [None]
  - INJECTION SITE ERYTHEMA [None]
  - DISTURBANCE IN ATTENTION [None]
  - INJECTION SITE PRURITUS [None]
  - INJECTION SITE RASH [None]
  - FATIGUE [None]
